FAERS Safety Report 7396398-5 (Version None)
Quarter: 2011Q2

REPORT INFORMATION
  Report Type: 
  Country: None (occurrence: None)
  Receive Date: 20110406
  Receipt Date: 20110401
  Transmission Date: 20111010
  Serious: Yes (Death, Hospitalization, Other)
  Sender: FDA-Public Use
  Company Number: JP-ROXANE LABORATORIES, INC.-2011-RO-00445RO

PATIENT
  Age: 81 Year
  Sex: Male
  Weight: 53.4 kg

DRUGS (3)
  1. DEXAMETHASONE [Suspect]
     Indication: PROSTATE CANCER
     Dosage: 1 MG
  2. ESTRAMUSTINE [Suspect]
     Indication: PROSTATE CANCER
     Dosage: 560 MG
     Route: 048
  3. DOCETAXEL [Suspect]
     Indication: PROSTATE CANCER
     Route: 042

REACTIONS (5)
  - LIVER DISORDER [None]
  - CHOLELITHIASIS [None]
  - MULTI-ORGAN FAILURE [None]
  - NICOTINIC ACID DEFICIENCY [None]
  - RENAL IMPAIRMENT [None]
